FAERS Safety Report 22227302 (Version 1)
Quarter: 2023Q2

REPORT INFORMATION
  Report Type: Spontaneous
  Country: DE (occurrence: DE)
  Receive Date: 20230419
  Receipt Date: 20230419
  Transmission Date: 20230721
  Serious: Yes (Other)
  Sender: FDA-Public Use
  Company Number: DE-BAXTER-2023BAX018855

PATIENT
  Age: 84 Year
  Sex: Female

DRUGS (1)
  1. SODIUM CHLORIDE [Suspect]
     Active Substance: SODIUM CHLORIDE
     Dosage: AT UNSPECIFIED DOSE AND FREQUENCY, DOSAGE FORM: INFUSION SOLUTION
     Route: 065

REACTIONS (1)
  - Pulmonary oedema [Unknown]
